FAERS Safety Report 5467469-5 (Version None)
Quarter: 2007Q3

REPORT INFORMATION
  Report Type: 
  Country: None (occurrence: None)
  Receive Date: 20070925
  Receipt Date: 20070918
  Transmission Date: 20080115
  Serious: Yes (Hospitalization)
  Sender: FDA-Public Use
  Company Number: US-PFIZER INC-2007078104

PATIENT
  Sex: Male
  Weight: 55 kg

DRUGS (2)
  1. GENOTROPIN [Suspect]
     Indication: GROWTH HORMONE DEFICIENCY
     Route: 058
     Dates: start: 19990101, end: 20070601
  2. LUPRON [Suspect]
     Dates: start: 20060101, end: 20070401

REACTIONS (6)
  - ABDOMINAL PAIN [None]
  - EAR INFECTION [None]
  - IMMUNE SYSTEM DISORDER [None]
  - INFLUENZA LIKE ILLNESS [None]
  - RASH [None]
  - VOMITING [None]
